FAERS Safety Report 16725072 (Version 1)
Quarter: 2019Q3

REPORT INFORMATION
  Report Type: Spontaneous
  Country: US (occurrence: US)
  Receive Date: 20190821
  Receipt Date: 20190821
  Transmission Date: 20191005
  Serious: No
  Sender: FDA-Public Use
  Company Number: US-PFIZER INC-2019357561

PATIENT
  Age: 62 Year
  Sex: Female

DRUGS (1)
  1. RELPAX [Suspect]
     Active Substance: ELETRIPTAN HYDROBROMIDE
     Indication: MIGRAINE
     Dosage: UNK, AS NEEDED (TAKE IT ONCE A DAY WHEN I GET MIGRAINE. SO IT^S WHEN NEEDED)

REACTIONS (5)
  - Muscle spasms [Recovered/Resolved]
  - Drug ineffective [Recovering/Resolving]
  - Eating disorder [Recovering/Resolving]
  - Abdominal discomfort [Recovering/Resolving]
  - Malaise [Recovering/Resolving]
